FAERS Safety Report 6139035-X (Version None)
Quarter: 2009Q1

REPORT INFORMATION
  Report Type: 
  Country: None (occurrence: None)
  Receive Date: 20090330
  Receipt Date: 20090317
  Transmission Date: 20090719
  Serious: Yes (Other)
  Sender: FDA-Public Use
  Company Number: 2009US000827

PATIENT
  Age: 58 Year
  Sex: Female
  Weight: 108.8 kg

DRUGS (16)
  1. LEXISCAN [Suspect]
     Indication: SCAN MYOCARDIAL PERFUSION
     Dosage: 0.4 MG,  IV NOS
     Route: 042
     Dates: start: 20090316, end: 20090316
  2. OMEPRAZOLE [Concomitant]
  3. PERCOCET [Concomitant]
  4. LASIX [Concomitant]
  5. TOPAMAX [Concomitant]
  6. FLUOXETINE [Concomitant]
  7. KLONOPIN [Concomitant]
  8. LOVASTATIN [Concomitant]
  9. METHADONE HCL [Concomitant]
  10. INDERAL [Concomitant]
  11. CARDIZEM [Concomitant]
  12. PHENERGAN (PROMETHAZINE) [Concomitant]
  13. NITROQUICK (GLYCERYL TRINITRATE) [Concomitant]
  14. ADVAIR DISKUS 100/50 [Concomitant]
  15. MIRALAX [Concomitant]
  16. PRO-AIR (PROCATEROL HYDROCHLORIDE) [Concomitant]

REACTIONS (3)
  - DYSPNOEA [None]
  - HYPERTENSION [None]
  - NAUSEA [None]
